FAERS Safety Report 7352815-8 (Version None)
Quarter: 2011Q1

REPORT INFORMATION
  Report Type: 
  Country: None (occurrence: None)
  Receive Date: 20110302
  Receipt Date: 20100914
  Transmission Date: 20110831
  Serious: Yes (Hospitalization)
  Sender: FDA-Public Use
  Company Number: 314749

PATIENT
  Age: 39 Year
  Sex: Male

DRUGS (1)
  1. NOVOLIN R [Suspect]
     Indication: TYPE 1 DIABETES MELLITUS
     Dosage: SLIDING SCALE AT MEAL TIME, MAXIMUM OF 15 U, SUBCUTANEOUS)
     Route: 058

REACTIONS (2)
  - BLOOD GLUCOSE INCREASED [None]
  - PRODUCT CONTAINER ISSUE [None]
